FAERS Safety Report 5993917-8 (Version None)
Quarter: 2008Q4

REPORT INFORMATION
  Report Type: 
  Country: None (occurrence: None)
  Receive Date: 20081212
  Receipt Date: 20081105
  Transmission Date: 20090506
  Serious: No
  Sender: FDA-Public Use
  Company Number: US-ABBOTT-08P-163-0469195-00

PATIENT
  Sex: Female
  Weight: 61.29 kg

DRUGS (5)
  1. HUMIRA [Suspect]
     Indication: CROHN'S DISEASE
     Route: 050
     Dates: start: 20070801, end: 20080601
  2. HUMIRA [Suspect]
     Route: 050
     Dates: start: 20080601
  3. PREDNISONE TAB [Concomitant]
     Indication: INFLAMMATION
     Route: 048
     Dates: end: 20080601
  4. PREDNISONE TAB [Concomitant]
     Route: 048
  5. PANTOPRAZOLE SODIUM [Concomitant]
     Indication: PROPHYLAXIS AGAINST GASTROINTESTINAL ULCER
     Route: 048

REACTIONS (4)
  - CROHN'S DISEASE [None]
  - DRUG INEFFECTIVE [None]
  - VITAMIN B12 DECREASED [None]
  - WHITE BLOOD CELL COUNT INCREASED [None]
